FAERS Safety Report 8989039 (Version 1)
Quarter: 2012Q4

REPORT INFORMATION
  Report Type: 
  Country: US (occurrence: US)
  Receive Date: 20121228
  Receipt Date: 20121228
  Transmission Date: 20130627
  Serious: Yes (Other)
  Sender: FDA-Public Use
  Company Number: US-ELI_LILLY_AND_COMPANY-US201212006381

PATIENT
  Age: 79 Year
  Sex: Female

DRUGS (1)
  1. CYMBALTA [Suspect]
     Indication: SEASONAL AFFECTIVE DISORDER
     Dosage: 60 mg, qd

REACTIONS (2)
  - Cataract [Unknown]
  - Off label use [Unknown]
